FAERS Safety Report 6376443-6 (Version None)
Quarter: 2009Q3

REPORT INFORMATION
  Report Type: 
  Country: None (occurrence: None)
  Receive Date: 20090925
  Receipt Date: 20090923
  Transmission Date: 20100115
  Serious: Yes (Hospitalization)
  Sender: FDA-Public Use
  Company Number: NL-JNJFOC-20090905311

PATIENT
  Age: 39 Year
  Sex: Male

DRUGS (4)
  1. RISPERDAL CONSTA [Suspect]
     Indication: SCHIZOPHRENIA
     Route: 030
  2. TRANXENE [Concomitant]
     Dosage: STARTED PRE-TRIAL
  3. AKINETON [Concomitant]
  4. ZOPICLON [Concomitant]

REACTIONS (1)
  - SUICIDAL IDEATION [None]
